FAERS Safety Report 6211509-2 (Version None)
Quarter: 2009Q2

REPORT INFORMATION
  Report Type: 
  Country: None (occurrence: None)
  Receive Date: 20090602
  Receipt Date: 20090528
  Transmission Date: 20091009
  Serious: Yes (Death)
  Sender: FDA-Public Use
  Company Number: HU-AVENTIS-200821780GDDC

PATIENT
  Age: 60 Year
  Sex: Male
  Weight: 78 kg

DRUGS (2)
  1. DOCETAXEL [Suspect]
     Route: 042
     Dates: start: 20081208, end: 20081208
  2. OXALIPLATIN [Suspect]
     Route: 042
     Dates: start: 20081208, end: 20081208

REACTIONS (4)
  - DIARRHOEA [None]
  - HYPERKALAEMIA [None]
  - HYPONATRAEMIA [None]
  - PULMONARY OEDEMA [None]
